FAERS Safety Report 13965929 (Version 1)
Quarter: 2017Q3

REPORT INFORMATION
  Report Type: Report from Study
  Country: FR (occurrence: FR)
  Receive Date: 20170913
  Receipt Date: 20170913
  Transmission Date: 20171128
  Serious: Yes (Life-Threatening)
  Sender: FDA-Public Use
  Company Number: FR-PFIZER INC-2016113258

PATIENT
  Age: 66 Year
  Sex: Male
  Weight: 83 kg

DRUGS (7)
  1. GEMTUZUMAB OZOGAMICIN [Suspect]
     Active Substance: GEMTUZUMAB OZOGAMICIN
     Indication: ACUTE MYELOID LEUKAEMIA
     Dosage: 3 MG/M2, DAILY
     Dates: start: 20160208, end: 20160208
  2. CYTARABINE. [Suspect]
     Active Substance: CYTARABINE
     Indication: ACUTE MYELOID LEUKAEMIA
     Dosage: 1500 MG/M2, EVERY 12 HOURS
     Dates: start: 20160208, end: 20160212
  3. POSACONAZOLE [Concomitant]
     Active Substance: POSACONAZOLE
     Indication: PYREXIA
     Dosage: 300 MG, DAILY
     Route: 048
     Dates: start: 20160218
  4. CORDARONE [Concomitant]
     Active Substance: AMIODARONE HYDROCHLORIDE
     Indication: CORONARY ARTERY DISEASE
     Dosage: 200 MG, DAILY
     Route: 048
     Dates: start: 20160219
  5. CIFLOX /00697201/ [Concomitant]
     Active Substance: CIPROFLOXACIN
     Indication: PYREXIA
     Dosage: 500 MG, DAILY
     Route: 048
     Dates: start: 20150220
  6. BISOPROLOL [Concomitant]
     Active Substance: BISOPROLOL
     Indication: HYPERTENSION
     Dosage: 0.25 MG, DAILY
     Route: 048
     Dates: start: 20160219
  7. TIENAM [Concomitant]
     Active Substance: CILASTATIN SODIUM\IMIPENEM
     Indication: PYREXIA
     Dosage: 2 G, DAILY
     Route: 042
     Dates: start: 20160220

REACTIONS (6)
  - Pyrexia [Unknown]
  - Lactic acidosis [Recovered/Resolved]
  - Confusional state [Unknown]
  - Tachypnoea [Recovered/Resolved]
  - Acute kidney injury [Unknown]
  - Sepsis [Recovered/Resolved]

NARRATIVE: CASE EVENT DATE: 20160220
